FAERS Safety Report 5013963-0 (Version None)
Quarter: 2006Q2

REPORT INFORMATION
  Report Type: 
  Country: None (occurrence: None)
  Receive Date: 20060525
  Receipt Date: 20060511
  Transmission Date: 20061013
  Serious: Yes (Death)
  Sender: FDA-Public Use
  Company Number: FR200605002485

PATIENT
  Age: 68 Year
  Sex: Male
  Weight: 68 kg

DRUGS (10)
  1. UMULINE (HUMAN INSULIN (RDNA ORIGIN) [Suspect]
     Indication: HYPERGLYCAEMIA
     Dosage: INTRAVENOUS
     Route: 042
     Dates: start: 20051117, end: 20051118
  2. UMULINE (HUMAN INSULIN (RDNA ORIGIN) [Suspect]
     Indication: HYPERGLYCAEMIA
     Dosage: INTRAVENOUS
     Route: 042
     Dates: start: 20051118, end: 20051119
  3. EXTRANEAL [Concomitant]
  4. ACTRAPID (INSULIN HUMAN) [Concomitant]
  5. RAMIPRIL [Concomitant]
  6. CELECTOL [Concomitant]
  7. AMLODIPINE BESYLATE [Concomitant]
  8. MIDAZOLAM HCL [Concomitant]
  9. EUPRESSYL (URAPIDIL) [Concomitant]
  10. LASIX [Concomitant]

REACTIONS (11)
  - BLOOD GLUCOSE FALSE POSITIVE [None]
  - BRADYCARDIA [None]
  - BRAIN OEDEMA [None]
  - CARDIAC ARREST [None]
  - CIRCUMSTANCE OR INFORMATION CAPABLE OF LEADING TO MEDICATION ERROR [None]
  - HAEMODYNAMIC INSTABILITY [None]
  - HYPOGLYCAEMIA [None]
  - INCORRECT DOSE ADMINISTERED [None]
  - LABORATORY TEST INTERFERENCE [None]
  - LOSS OF CONSCIOUSNESS [None]
  - SYMPTOM MASKED [None]
